FAERS Safety Report 21672081 (Version 1)
Quarter: 2022Q4

REPORT INFORMATION
  Report Type: Spontaneous
  Country: US (occurrence: US)
  Receive Date: 20221202
  Receipt Date: 20221202
  Transmission Date: 20230112
  Serious: No
  Sender: FDA-Public Use
  Company Number: US-ABBVIE-4219522

PATIENT
  Age: 39 Year
  Sex: Female
  Weight: 102 kg

DRUGS (2)
  1. CREON [Suspect]
     Active Substance: PANCRELIPASE AMYLASE\PANCRELIPASE LIPASE\PANCRELIPASE PROTEASE
     Indication: Pancreatic failure
     Dosage: 2CAPS 3X A DAY WITH MEAL
     Route: 048
     Dates: start: 202109, end: 2022
  2. ALAVERT ALLERGY [Concomitant]
     Active Substance: LORATADINE
     Indication: Product used for unknown indication
     Dosage: 2TABS OD OR 4TABS OD

REACTIONS (3)
  - Inappropriate schedule of product discontinuation [Not Recovered/Not Resolved]
  - Enzyme level decreased [Not Recovered/Not Resolved]
  - Back pain [Unknown]

NARRATIVE: CASE EVENT DATE: 20210901
